FAERS Safety Report 21064331 (Version 1)
Quarter: 2022Q3

REPORT INFORMATION
  Report Type: Spontaneous
  Country: US (occurrence: US)
  Receive Date: 20220711
  Receipt Date: 20220711
  Transmission Date: 20221026
  Serious: No
  Sender: FDA-Public Use
  Company Number: US-BAYER-2022A092528

PATIENT

DRUGS (1)
  1. STIVARGA [Suspect]
     Active Substance: REGORAFENIB
     Indication: Metastases to lung
     Dosage: 120 MG, QD FOR 21 DAYS OF A 28 DAY CYCLE
     Route: 048

REACTIONS (6)
  - Dysphonia [None]
  - Oral pain [None]
  - Eating disorder [None]
  - Diarrhoea [None]
  - Drug ineffective [None]
  - Off label use [None]
